FAERS Safety Report 14967117 (Version 1)
Quarter: 2018Q3

REPORT INFORMATION
  Report Type: Spontaneous
  Country: CN (occurrence: CN)
  Receive Date: 20180604
  Receipt Date: 20180604
  Transmission Date: 20181010
  Serious: Yes (Death)
  Sender: FDA-Public Use
  Company Number: CN-CHEPLA-C20170203_B

PATIENT
  Age: 78 Year
  Sex: Female

DRUGS (1)
  1. ALL?TRANSRETINOIC ACID (ATRA) [Suspect]
     Active Substance: TRETINOIN
     Indication: ACUTE MYELOID LEUKAEMIA

REACTIONS (3)
  - Refusal of treatment by patient [None]
  - Product use in unapproved indication [Recovered/Resolved]
  - Death [Fatal]
